FAERS Safety Report 25711051 (Version 1)
Quarter: 2025Q3

REPORT INFORMATION
  Report Type: Spontaneous
  Country: US (occurrence: US)
  Receive Date: 20250821
  Receipt Date: 20250821
  Transmission Date: 20251021
  Serious: No
  Sender: SANOFI AVENTIS
  Company Number: US-SA-2025SA248992

PATIENT
  Age: 2 Year
  Sex: Male

DRUGS (1)
  1. DUPIXENT [Suspect]
     Active Substance: DUPILUMAB
     Indication: Eczema
     Dosage: 300 MG, Q4W
     Route: 058
     Dates: start: 20250609

REACTIONS (6)
  - Nasopharyngitis [Unknown]
  - Rhinorrhoea [Unknown]
  - Cough [Unknown]
  - Eczema [Unknown]
  - Rash erythematous [Unknown]
  - Rash pruritic [Unknown]

NARRATIVE: CASE EVENT DATE: 20250101
